FAERS Safety Report 20438157 (Version 1)
Quarter: 2022Q1

REPORT INFORMATION
  Report Type: Spontaneous
  Country: GB (occurrence: GB)
  Receive Date: 20220207
  Receipt Date: 20220207
  Transmission Date: 20220423
  Serious: No
  Sender: FDA-Public Use
  Company Number: None

PATIENT

DRUGS (33)
  1. PREGABALIN [Suspect]
     Active Substance: PREGABALIN
     Indication: Product used for unknown indication
     Dosage: 75 MILLIGRAM, TID
     Route: 048
     Dates: start: 20211013
  2. AMOXICILLIN [Concomitant]
     Active Substance: AMOXICILLIN
     Indication: Product used for unknown indication
     Dosage: UNK UNK, BID
     Route: 065
     Dates: start: 20211026, end: 20211122
  3. APIXABAN [Concomitant]
     Active Substance: APIXABAN
     Indication: Product used for unknown indication
     Dosage: 2.5 MILLIGRAM, BID
     Dates: start: 20211122, end: 20211215
  4. APIXABAN [Concomitant]
     Active Substance: APIXABAN
     Dosage: 2.5 MILLIGRAM
     Route: 048
     Dates: start: 20211215, end: 20211229
  5. APIXABAN [Concomitant]
     Active Substance: APIXABAN
     Dosage: ONE TO BE TAKEN TWICE A DAY 12 HOURS APART
     Route: 065
     Dates: start: 20211026
  6. APIXABAN [Concomitant]
     Active Substance: APIXABAN
     Dosage: ONE TO BE TAKEN TWICE A DAY 12 HOURS APART
     Route: 065
     Dates: start: 20211220
  7. APIXABAN [Concomitant]
     Active Substance: APIXABAN
     Dosage: ONE TO BE TAKEN TWICE A DAY 12 HOURS APART
     Dates: start: 20211122
  8. APIXABAN [Concomitant]
     Active Substance: APIXABAN
     Dosage: ONE TO BE TAKEN TWICE A DAY 12 HOURS APART
     Dates: start: 20211122, end: 20211215
  9. CARVEDILOL [Concomitant]
     Active Substance: CARVEDILOL
     Indication: Product used for unknown indication
     Dosage: 6.25 MILLIGRAM, BID
     Route: 065
     Dates: start: 20211122
  10. CARVEDILOL [Concomitant]
     Active Substance: CARVEDILOL
     Dosage: 6.25 MILLIGRAM, BID
     Route: 065
     Dates: start: 20211026, end: 20211122
  11. CARVEDILOL [Concomitant]
     Active Substance: CARVEDILOL
     Dosage: 6.25 MILLIGRAM, BID
     Route: 065
     Dates: start: 20211122, end: 20211215
  12. CARVEDILOL [Concomitant]
     Active Substance: CARVEDILOL
     Dosage: 6.25 MILLIGRAM, BID
     Route: 065
     Dates: start: 20211215, end: 20211229
  13. CARVEDILOL [Concomitant]
     Active Substance: CARVEDILOL
     Dosage: 6.25 MILLIGRAM
     Route: 065
     Dates: start: 20211220
  14. CARVEDILOL [Concomitant]
     Active Substance: CARVEDILOL
     Dosage: 6.25 MILLIGRAM, BID
     Route: 065
     Dates: start: 20211026
  15. FUROSEMIDE [Concomitant]
     Active Substance: FUROSEMIDE
     Indication: Product used for unknown indication
     Dosage: 40 MILLIGRAM, QD
     Route: 065
     Dates: start: 20211122, end: 20211215
  16. FUROSEMIDE [Concomitant]
     Active Substance: FUROSEMIDE
     Dosage: 40 MILLIGRAM, QD
     Route: 065
     Dates: start: 20211220
  17. FUROSEMIDE [Concomitant]
     Active Substance: FUROSEMIDE
     Dosage: 40 MILLIGRAM, QD
     Route: 065
     Dates: start: 20211122
  18. FUROSEMIDE [Concomitant]
     Active Substance: FUROSEMIDE
     Dosage: 40 MILLIGRAM
     Route: 065
     Dates: start: 20211026
  19. FUROSEMIDE [Concomitant]
     Active Substance: FUROSEMIDE
     Dosage: 40 UNK
     Route: 065
     Dates: start: 20211026, end: 20211122
  20. FUROSEMIDE [Concomitant]
     Active Substance: FUROSEMIDE
     Dosage: 40 UNK, QD
     Route: 065
     Dates: start: 20211215, end: 20211229
  21. IBUPROFEN [Concomitant]
     Active Substance: IBUPROFEN
     Indication: Product used for unknown indication
     Dosage: APPLY THREE TIMES DAILY TO THE AFFECTED AREA(S)
     Route: 065
     Dates: start: 20211124
  22. ISOSORBIDE MONONITRATE [Concomitant]
     Active Substance: ISOSORBIDE MONONITRATE
     Indication: Product used for unknown indication
     Dosage: TWO TO BE TAKEN DAILY
     Route: 065
     Dates: start: 20211026, end: 20211122
  23. ISOSORBIDE MONONITRATE [Concomitant]
     Active Substance: ISOSORBIDE MONONITRATE
     Dosage: TWO TO BE TAKEN DAILY
     Dates: start: 20211122
  24. ISOSORBIDE MONONITRATE [Concomitant]
     Active Substance: ISOSORBIDE MONONITRATE
     Dosage: TWO TO BE TAKEN DAILY
     Dates: start: 20211122, end: 20211215
  25. ISOSORBIDE MONONITRATE [Concomitant]
     Active Substance: ISOSORBIDE MONONITRATE
     Dosage: TWO TO BE TAKEN DAILY
     Dates: start: 20211220
  26. ISOSORBIDE MONONITRATE [Concomitant]
     Active Substance: ISOSORBIDE MONONITRATE
     Dosage: TWO TO BE TAKEN DAILY
     Dates: start: 20211215, end: 20211229
  27. ISOSORBIDE MONONITRATE [Concomitant]
     Active Substance: ISOSORBIDE MONONITRATE
     Dosage: TWO TO BE TAKEN DAILY
     Dates: start: 20211026
  28. RAMIPRIL [Concomitant]
     Active Substance: RAMIPRIL
     Indication: Product used for unknown indication
     Dosage: TAKE ONE TWICE DAILY
     Dates: start: 20211122
  29. RAMIPRIL [Concomitant]
     Active Substance: RAMIPRIL
     Dosage: TAKE ONE TWICE DAILY
     Dates: start: 20211215, end: 20211229
  30. RAMIPRIL [Concomitant]
     Active Substance: RAMIPRIL
     Dosage: TAKE ONE TWICE DAILY
     Dates: start: 20211122, end: 20211215
  31. RAMIPRIL [Concomitant]
     Active Substance: RAMIPRIL
     Dosage: TAKE ONE TWICE DAILY
     Dates: start: 20211026
  32. RAMIPRIL [Concomitant]
     Active Substance: RAMIPRIL
     Dosage: TAKE ONE TWICE DAILY
     Dates: start: 20211220
  33. RAMIPRIL [Concomitant]
     Active Substance: RAMIPRIL
     Dosage: TAKE ONE TWICE DAILY
     Dates: start: 20211026, end: 20211122

REACTIONS (1)
  - Adverse drug reaction [Recovered/Resolved]
